FAERS Safety Report 8815663 (Version 2)
Quarter: 2012Q4

REPORT INFORMATION
  Report Type: Report from Study
  Country: CA (occurrence: CA)
  Receive Date: 20120928
  Receipt Date: 20121129
  Transmission Date: 20130627
  Serious: Yes (Hospitalization, Other)
  Sender: FDA-Public Use
  Company Number: CA-ABBOTT-12P-028-0985758-00

PATIENT
  Age: 34 None
  Sex: Male
  Weight: 61.29 kg

DRUGS (4)
  1. HUMIRA [Suspect]
     Indication: CROHN^S DISEASE
     Route: 058
     Dates: start: 20100505
  2. HUMIRA [Suspect]
     Route: 058
     Dates: start: 2010
  3. UNKNOWN BLOOD THINNER [Suspect]
     Indication: THROMBOSIS PROPHYLAXIS
     Route: 042
     Dates: start: 201012, end: 201012
  4. PREDNISONE [Concomitant]
     Indication: CROHN^S DISEASE
     Dosage: 8/day than tapered
     Dates: start: 201003

REACTIONS (7)
  - Vascular pseudoaneurysm [Recovered/Resolved]
  - Anaemia [Unknown]
  - Small intestinal stenosis [Recovered/Resolved]
  - Crohn^s disease [Recovered/Resolved]
  - Procedural pain [Recovered/Resolved]
  - Incision site hypoaesthesia [Recovered/Resolved]
  - Weight fluctuation [Not Recovered/Not Resolved]
